FAERS Safety Report 8065908-7 (Version None)
Quarter: 2012Q1

REPORT INFORMATION
  Report Type: 
  Country: None (occurrence: None)
  Receive Date: 20120124
  Receipt Date: 20120111
  Transmission Date: 20120608
  Serious: Yes (Other)
  Sender: FDA-Public Use
  Company Number: JP-ELI_LILLY_AND_COMPANY-JP201201004557

PATIENT
  Age: 77 Year
  Sex: Female

DRUGS (1)
  1. CYMBALTA [Suspect]
     Indication: NEURALGIA
     Dosage: 20 MG, QD
     Route: 048
     Dates: start: 20111019, end: 20111020

REACTIONS (2)
  - OFF LABEL USE [None]
  - LOSS OF CONSCIOUSNESS [None]
